FAERS Safety Report 9493784 (Version 2)
Quarter: 2014Q1

REPORT INFORMATION
  Report Type: Spontaneous
  Country: FR (occurrence: FR)
  Receive Date: 20130902
  Receipt Date: 20140321
  Transmission Date: 20141002
  Serious: Yes (Other)
  Sender: FDA-Public Use
  Company Number: FR-ROCHE-1268730

PATIENT
  Age: 47 Year
  Sex: Female

DRUGS (3)
  1. HERCEPTIN [Suspect]
     Indication: BREAST NEOPLASM
     Dosage: RECEIVED CYCLE 2 DAY 15 ON 05/AUG/2013
     Route: 042
     Dates: start: 20130610
  2. XELODA [Suspect]
     Indication: BREAST NEOPLASM
     Route: 048
     Dates: start: 20130610, end: 20130729
  3. PACLITAXEL [Suspect]
     Indication: BREAST NEOPLASM
     Dosage: RECEIVED CYCLE 2 DAY 15 ON 05/AUG/2013
     Route: 042
     Dates: start: 20130610

REACTIONS (2)
  - Transaminases increased [Not Recovered/Not Resolved]
  - Gamma-glutamyltransferase increased [Not Recovered/Not Resolved]
